FAERS Safety Report 8129899-2 (Version None)
Quarter: 2012Q1

REPORT INFORMATION
  Report Type: 
  Country: None (occurrence: None)
  Receive Date: 20120210
  Receipt Date: 20120131
  Transmission Date: 20120608
  Serious: Yes (Disabling, Other)
  Sender: FDA-Public Use
  Company Number: US-ROCHE-798346

PATIENT

DRUGS (1)
  1. AVASTIN [Suspect]
     Indication: AGE-RELATED MACULAR DEGENERATION
     Route: 050
     Dates: start: 20110812, end: 20110815

REACTIONS (3)
  - VISUAL ACUITY REDUCED [None]
  - INFLAMMATION [None]
  - INTRAOCULAR PRESSURE INCREASED [None]
